FAERS Safety Report 6985829-8 (Version None)
Quarter: 2010Q3

REPORT INFORMATION
  Report Type: 
  Country: None (occurrence: None)
  Receive Date: 20100915
  Receipt Date: 20100907
  Transmission Date: 20110219
  Serious: Yes (Other)
  Sender: FDA-Public Use
  Company Number: IT-BAYER-201038807GPV

PATIENT
  Age: 47 Year
  Sex: Female

DRUGS (3)
  1. ASPIRIN [Suspect]
     Indication: THROMBOSIS PROPHYLAXIS
     Dosage: TOTAL DAILY DOSE: 100 MG  UNIT DOSE: 100 MG
     Route: 048
     Dates: start: 20100201, end: 20100830
  2. ZYLORIC [Suspect]
     Indication: HYPERURICAEMIA
     Route: 048
     Dates: start: 20100201, end: 20100830
  3. ONCO CARBIDE (HYDROXYCARBAMIDE) [Concomitant]
     Indication: POLYCYTHAEMIA VERA

REACTIONS (2)
  - BRAIN OEDEMA [None]
  - PRURITUS [None]
